FAERS Safety Report 4341529-4 (Version None)
Quarter: 2004Q2

REPORT INFORMATION
  Report Type: 
  Country: None (occurrence: None)
  Receive Date: 20040420
  Receipt Date: 20010130
  Transmission Date: 20050107
  Serious: Yes (Hospitalization)
  Sender: FDA-Public Use
  Company Number: 200110765FR

PATIENT
  Age: 51 Year
  Sex: Female
  Weight: 73 kg

DRUGS (2)
  1. ARAVA [Suspect]
     Indication: RHEUMATOID ARTHRITIS
     Route: 048
     Dates: start: 20001101, end: 20001226
  2. UNKNOWN DRUG [Concomitant]

REACTIONS (20)
  - ABDOMINAL PAIN [None]
  - ALOPECIA [None]
  - ANTINUCLEAR ANTIBODY POSITIVE [None]
  - ARTHROPOD BITE [None]
  - CRYOGLOBULINAEMIA [None]
  - FACE OEDEMA [None]
  - GENERAL PHYSICAL HEALTH DETERIORATION [None]
  - HEADACHE [None]
  - HERPES SIMPLEX [None]
  - HUMAN HERPES VIRUS 6 SEROLOGY POSITIVE [None]
  - HYPERSENSITIVITY [None]
  - INFECTION [None]
  - LYMPHADENOPATHY [None]
  - NAUSEA [None]
  - NEUTROPHIL COUNT INCREASED [None]
  - PYREXIA [None]
  - SJOGREN'S SYNDROME [None]
  - SKIN TEST POSITIVE [None]
  - T-LYMPHOCYTE COUNT INCREASED [None]
  - TOXIC SKIN ERUPTION [None]
